FAERS Safety Report 16526034 (Version 3)
Quarter: 2019Q3

REPORT INFORMATION
  Report Type: Spontaneous
  Country: JP (occurrence: JP)
  Receive Date: 20190703
  Receipt Date: 20190712
  Transmission Date: 20191004
  Serious: Yes (Other)
  Sender: FDA-Public Use
  Company Number: JP-AUROBINDO-AUR-APL-2019-038405

PATIENT

DRUGS (1)
  1. FOLOTYN [Suspect]
     Active Substance: PRALATREXATE
     Indication: ANGIOIMMUNOBLASTIC T-CELL LYMPHOMA
     Dosage: 20 MILLIGRAM/SQ. METER, EVERY TWO WEEKS
     Route: 042
     Dates: start: 201802, end: 201810

REACTIONS (3)
  - Stomatitis [Unknown]
  - Epstein-Barr virus associated lymphoma [Recovering/Resolving]
  - Bone marrow failure [Unknown]
